FAERS Safety Report 24044474 (Version 1)
Quarter: 2024Q3

REPORT INFORMATION
  Report Type: Spontaneous
  Country: US (occurrence: None)
  Receive Date: 20240703
  Receipt Date: 20240703
  Transmission Date: 20241016
  Serious: Yes (Other)
  Sender: ASTRAZENECA
  Company Number: 2024A147039

PATIENT
  Sex: Female

DRUGS (1)
  1. FARXIGA [Suspect]
     Active Substance: DAPAGLIFLOZIN PROPANEDIOL
     Route: 048
     Dates: end: 20240624

REACTIONS (10)
  - Dysarthria [Unknown]
  - Presyncope [Unknown]
  - Swelling [Recovering/Resolving]
  - Urticaria [Recovered/Resolved]
  - Dyspnoea [Recovering/Resolving]
  - Brain fog [Unknown]
  - Decreased activity [Unknown]
  - Vision blurred [Unknown]
  - Dizziness [Recovering/Resolving]
  - Product label issue [Unknown]
